FAERS Safety Report 9269585 (Version 1)
Quarter: 2013Q2

REPORT INFORMATION
  Report Type: Spontaneous
  Country: US (occurrence: US)
  Receive Date: 20130503
  Receipt Date: 20130503
  Transmission Date: 20140414
  Serious: Yes (Hospitalization)
  Sender: FDA-Public Use
  Company Number: US-BAYER-2013-053183

PATIENT
  Age: 29 Year
  Sex: Female
  Weight: 53.06 kg

DRUGS (16)
  1. YAZ [Suspect]
  2. YASMIN [Suspect]
  3. PERCOCET [Concomitant]
     Dosage: UNK
     Dates: start: 20060728
  4. MOTRIN [Concomitant]
     Dosage: UNK
     Dates: start: 20070401
  5. DILAUDID [Concomitant]
  6. TORADOL [Concomitant]
  7. ZANTAC [Concomitant]
  8. PROTONIX [Concomitant]
  9. MAALOX [Concomitant]
  10. CIPROFLOXACIN [Concomitant]
  11. LORTAB [Concomitant]
  12. VICODIN [Concomitant]
  13. ROCEPHINE [Concomitant]
  14. INDOCIN [Concomitant]
  15. CYTOTEC [Concomitant]
  16. TRAMADOL [Concomitant]

REACTIONS (2)
  - Cholecystitis chronic [None]
  - Pulmonary embolism [Recovered/Resolved]
